FAERS Safety Report 21876805 (Version 1)
Quarter: 2023Q1

REPORT INFORMATION
  Report Type: Report from Study
  Country: US (occurrence: US)
  Receive Date: 20230118
  Receipt Date: 20230118
  Transmission Date: 20230418
  Serious: Yes (Other)
  Sender: FDA-Public Use
  Company Number: US-EXELIXIS-CABO-23059733

PATIENT
  Age: 51 Year
  Sex: Female
  Weight: 106.58 kg

DRUGS (10)
  1. CABOMETYX [Suspect]
     Active Substance: CABOZANTINIB S-MALATE
     Indication: Renal cell carcinoma
     Dosage: 40 MG, QD
     Route: 048
     Dates: start: 202210, end: 20230106
  2. OPDIVO [Concomitant]
     Active Substance: NIVOLUMAB
  3. AMLODIPINE [Concomitant]
     Active Substance: AMLODIPINE BESYLATE
  4. ELIQUIS [Concomitant]
     Active Substance: APIXABAN
  5. METOPROLOL [Concomitant]
     Active Substance: METOPROLOL
  6. MONTELUKAST [Concomitant]
     Active Substance: MONTELUKAST SODIUM
  7. VITAMINS [Concomitant]
     Active Substance: VITAMINS
  8. VITAMIN C [Concomitant]
     Active Substance: ASCORBIC ACID
  9. OXYCODONE [Concomitant]
     Active Substance: OXYCODONE
  10. VITAMIN D3 [Concomitant]
     Active Substance: CHOLECALCIFEROL

REACTIONS (3)
  - Gallbladder disorder [Unknown]
  - Liver function test abnormal [Unknown]
  - Taste disorder [Unknown]

NARRATIVE: CASE EVENT DATE: 20230101
